FAERS Safety Report 8257170-7 (Version None)
Quarter: 2012Q1

REPORT INFORMATION
  Report Type: 
  Country: None (occurrence: None)
  Receive Date: 20120330
  Receipt Date: 20120330
  Transmission Date: 20120608
  Serious: No
  Sender: FDA-Public Use
  Company Number: None

PATIENT
  Sex: Female
  Weight: 52 kg

DRUGS (10)
  1. FLONASE [Concomitant]
  2. BENICAR [Concomitant]
  3. XANAX [Concomitant]
  4. FENTANYL CITRATE [Suspect]
     Indication: PROCEDURAL PAIN
     Dosage: 120 MG CONT. IV PCA
     Route: 042
     Dates: start: 20111020, end: 20111022
  5. NASONEX [Concomitant]
  6. TOPROL-XL [Concomitant]
  7. PREVACID [Concomitant]
  8. IRM [Concomitant]
  9. SIMVASTATIN [Concomitant]
  10. PROTONIX [Concomitant]

REACTIONS (1)
  - UNRESPONSIVE TO STIMULI [None]
